FAERS Safety Report 5241785-4 (Version None)
Quarter: 2007Q1

REPORT INFORMATION
  Report Type: 
  Country: None (occurrence: None)
  Receive Date: 20070220
  Receipt Date: 20070214
  Transmission Date: 20070707
  Serious: Yes (Hospitalization)
  Sender: FDA-Public Use
  Company Number: 2007CG00268

PATIENT
  Age: 39 Year
  Sex: Male

DRUGS (3)
  1. PULMICORT [Suspect]
     Route: 055
     Dates: start: 20070104, end: 20070107
  2. TUSSIDANE [Suspect]
     Route: 048
     Dates: start: 20070104, end: 20070107
  3. MONONAXY [Suspect]
     Route: 048
     Dates: start: 20070104, end: 20070107

REACTIONS (3)
  - ABNORMAL BEHAVIOUR [None]
  - ANXIETY [None]
  - PARAESTHESIA [None]
